FAERS Safety Report 9394879 (Version 1)
Quarter: 2013Q3

REPORT INFORMATION
  Report Type: Spontaneous
  Country: BR (occurrence: BR)
  Receive Date: 20130711
  Receipt Date: 20130711
  Transmission Date: 20140515
  Serious: Yes (Other)
  Sender: FDA-Public Use
  Company Number: BR-ASTRAZENECA-2013SE50704

PATIENT
  Age: 43 Year
  Sex: Male
  Weight: 103 kg

DRUGS (2)
  1. ATACAND HCT [Suspect]
     Indication: HYPERTENSION
     Dosage: 8/12.5MG, DAILY
     Route: 048
     Dates: start: 2011, end: 201306
  2. ATACAND HCT [Suspect]
     Indication: HYPERTENSION
     Dosage: 16/12.5MG, UNKNOWN FREQUENCY
     Route: 048
     Dates: start: 201306

REACTIONS (4)
  - Blood pressure increased [Recovered/Resolved]
  - Weight decreased [Unknown]
  - Blood triglycerides increased [Not Recovered/Not Resolved]
  - Drug ineffective [Unknown]
